FAERS Safety Report 5124921-X (Version None)
Quarter: 2006Q4

REPORT INFORMATION
  Report Type: 
  Country: None (occurrence: None)
  Receive Date: 20061011
  Receipt Date: 20061002
  Transmission Date: 20070319
  Serious: Yes (Other)
  Sender: FDA-Public Use
  Company Number: JP-BRISTOL-MYERS SQUIBB COMPANY-13530449

PATIENT
  Age: 42 Year
  Sex: Female

DRUGS (5)
  1. ENDOXAN [Suspect]
     Indication: DRUG USE FOR UNKNOWN INDICATION
     Route: 041
     Dates: start: 20060630, end: 20060630
  2. FLUOROURACIL [Suspect]
     Indication: DRUG USE FOR UNKNOWN INDICATION
     Route: 041
     Dates: start: 20060630, end: 20060630
  3. FARMORUBICIN [Suspect]
     Indication: DRUG USE FOR UNKNOWN INDICATION
     Route: 041
     Dates: start: 20060630, end: 20060630
  4. KYTRIL [Concomitant]
     Dates: start: 20060630, end: 20060630
  5. DECADRON [Concomitant]
     Dates: start: 20060630, end: 20060630

REACTIONS (1)
  - NEUTROPHIL COUNT DECREASED [None]
